FAERS Safety Report 16616687 (Version 2)
Quarter: 2019Q3

REPORT INFORMATION
  Report Type: Spontaneous
  Country: US (occurrence: US)
  Receive Date: 20190723
  Receipt Date: 20190723
  Transmission Date: 20191004
  Serious: No
  Sender: FDA-Public Use
  Company Number: US-GALDERMA-US19040419

PATIENT
  Age: 23 Year
  Sex: Female

DRUGS (3)
  1. PROACTIV MD ADAPALENE ACNE TREATMENT [Suspect]
     Active Substance: ADAPALENE
     Indication: HIDRADENITIS
     Dosage: 0.1%
     Route: 061
     Dates: start: 20180601, end: 201807
  2. PROACTIV MD DAILY OIL CONTROL SPF 30 [Suspect]
     Active Substance: AVOBENZONE\OCTISALATE\OCTOCRYLENE
     Indication: HIDRADENITIS
     Route: 061
     Dates: start: 20180601, end: 201807
  3. PROACTIV MD DEEP CLEANSING FACE WASH [Concomitant]
     Active Substance: COSMETICS
     Indication: HIDRADENITIS
     Route: 061
     Dates: start: 20180601, end: 201807

REACTIONS (3)
  - Product use in unapproved indication [Recovered/Resolved]
  - Dry skin [Recovered/Resolved]
  - Abscess [Recovered/Resolved]

NARRATIVE: CASE EVENT DATE: 201806
